FAERS Safety Report 7560259-9 (Version None)
Quarter: 2011Q2

REPORT INFORMATION
  Report Type: 
  Country: None (occurrence: None)
  Receive Date: 20110614
  Receipt Date: 20110531
  Transmission Date: 20111010
  Serious: Yes (Hospitalization)
  Sender: FDA-Public Use
  Company Number: DSJ-2011-08366

PATIENT
  Age: 76 Year
  Sex: Male
  Weight: 65 kg

DRUGS (5)
  1. ALLOPURINOL [Suspect]
     Dosage: 1 DOSAGE FORMS 91 DOSAGE FORMS,1 IN 1 D), PER ORAL
     Route: 048
     Dates: start: 20090303
  2. CELECOXIB [Concomitant]
  3. OLMESARTAN MEDOXOMIL [Suspect]
     Indication: PRODUCT USED FOR UNKNOWN INDICATION
     Dosage: 1 DOSAGE FORMS (1 DOSAGE FORMS,1 IN 1 D), PER ORAL
     Route: 048
     Dates: start: 20080221
  4. NICARDIPINE HYDROCHLORIDE [Suspect]
     Indication: HYPERTENSION
     Dosage: 40 MG (40 MG,1 IN 1 D), PER ORAL
     Route: 048
     Dates: start: 20080225
  5. LOXOPROFEN (LOXOPROFEN) (TABLET) (LOXOPROFEN) [Concomitant]

REACTIONS (1)
  - CEREBRAL INFARCTION [None]
